FAERS Safety Report 6557089-3 (Version None)
Quarter: 2010Q1

REPORT INFORMATION
  Report Type: 
  Country: None (occurrence: None)
  Receive Date: 20100128
  Receipt Date: 20100118
  Transmission Date: 20100710
  Serious: Yes (Death, Other)
  Sender: FDA-Public Use
  Company Number: JP-AMGEN-US383191

PATIENT
  Sex: Female
  Weight: 60 kg

DRUGS (10)
  1. ENBREL [Suspect]
     Indication: RHEUMATOID ARTHRITIS
     Route: 058
     Dates: start: 20090331, end: 20090825
  2. EPADEL [Concomitant]
     Indication: HYPERLIPIDAEMIA
     Route: 048
  3. GASTER [Concomitant]
     Indication: PROPHYLAXIS
     Route: 048
  4. RENIVACE [Concomitant]
     Indication: HYPERTENSION
     Route: 048
  5. CARBOCISTEINE [Concomitant]
     Route: 048
     Dates: start: 20090820, end: 20090827
  6. MEDICON [Concomitant]
     Indication: COUGH
     Route: 048
     Dates: start: 20090716, end: 20090827
  7. MELBIN [Concomitant]
     Indication: DIABETES MELLITUS
     Route: 048
  8. LIPITOR [Concomitant]
     Indication: HYPERCHOLESTEROLAEMIA
     Route: 048
  9. ALLEGRA [Concomitant]
     Route: 048
  10. GLUFAST [Concomitant]
     Indication: DIABETES MELLITUS
     Route: 048
     Dates: start: 20090416

REACTIONS (3)
  - ABASIA [None]
  - FALL [None]
  - STARVATION [None]
